FAERS Safety Report 8549237-0 (Version None)
Quarter: 2012Q3

REPORT INFORMATION
  Report Type: 
  Country: None (occurrence: None)
  Receive Date: 20120730
  Receipt Date: 20120725
  Transmission Date: 20120928
  Serious: Yes (Hospitalization)
  Sender: FDA-Public Use
  Company Number: PHHO2012PH007174

PATIENT
  Sex: Male
  Weight: 73 kg

DRUGS (14)
  1. ENALAPRIL MALEATE [Suspect]
     Dosage: DOUBLE BLINDED
     Route: 048
     Dates: start: 20120507
  2. VALSARTAN [Suspect]
     Dosage: DOUBLE BLINDED (DOSE REDUCED TO LEVEL 2)
     Route: 048
     Dates: start: 20120510
  3. ENALAPRIL MALEATE [Suspect]
     Indication: CARDIAC FAILURE CHRONIC
     Dosage: DOUBLE BLINDED
     Route: 048
     Dates: start: 20120104, end: 20120502
  4. BLINDED NO TREATMENT RECEIVED [Suspect]
     Dosage: DOUBLE BLINDED (DOSE REDUCED TO LEVEL 2)
     Route: 048
     Dates: start: 20120510
  5. BLINDED NO TREATMENT RECEIVED [Suspect]
     Indication: CARDIAC FAILURE CHRONIC
     Dosage: DOUBLE BLINDED
     Route: 048
     Dates: start: 20120104, end: 20120502
  6. VALSARTAN [Suspect]
     Dosage: DOUBLE BLINDED
     Route: 048
     Dates: start: 20120507
  7. BLINDED NO TREATMENT RECEIVED [Suspect]
     Dosage: DOUBLE BLINDED
     Route: 048
     Dates: start: 20120507
  8. ENALAPRIL MALEATE [Suspect]
     Dosage: DOUBLE BLINDED (DOSE REDUCED TO LEVEL 2)
     Route: 048
     Dates: start: 20120510
  9. VALSARTAN [Suspect]
     Dosage: DOUBLE BLINDED (DOSE LEVEL 3)
     Route: 048
     Dates: start: 20120530
  10. KALIUM DURULES [Concomitant]
     Indication: HYPOKALAEMIA
  11. VALSARTAN [Suspect]
     Indication: CARDIAC FAILURE CHRONIC
     Dosage: DOUBLE BLINDED
     Route: 048
     Dates: start: 20120104, end: 20120502
  12. BLINDED NO TREATMENT RECEIVED [Suspect]
     Dosage: DOUBLE BLINDED (DOSE LEVEL 3)
     Route: 048
     Dates: start: 20120530
  13. ASPIRIN [Suspect]
     Indication: DRUG THERAPY
     Dosage: UNK
  14. ENALAPRIL MALEATE [Suspect]
     Dosage: DOUBLE BLINDED (DOSE LEVEL 3)
     Route: 048
     Dates: start: 20120530

REACTIONS (3)
  - ACUTE PRERENAL FAILURE [None]
  - PNEUMONIA [None]
  - CARDIAC FAILURE ACUTE [None]
